FAERS Safety Report 18777826 (Version 2)
Quarter: 2021Q2

REPORT INFORMATION
  Report Type: Spontaneous
  Country: US (occurrence: US)
  Receive Date: 20210122
  Receipt Date: 20210423
  Transmission Date: 20210717
  Serious: No
  Sender: FDA-Public Use
  Company Number: 2020SGN03561

PATIENT
  Sex: Female

DRUGS (4)
  1. CAPECITABINE. [Concomitant]
     Active Substance: CAPECITABINE
     Indication: BREAST CANCER FEMALE
     Dosage: 500 MG
     Dates: start: 20200706
  2. TUKYSA [Suspect]
     Active Substance: TUCATINIB
     Indication: BREAST CANCER FEMALE
     Dosage: 150 MG, BID
     Route: 048
     Dates: start: 20200706, end: 20210119
  3. HERCEPTIN [Concomitant]
     Active Substance: TRASTUZUMAB
     Indication: BREAST CANCER FEMALE
     Dosage: 840 MG, Q3WEEKS
     Route: 042
     Dates: start: 20200706
  4. TUKYSA [Suspect]
     Active Substance: TUCATINIB
     Dosage: UNK
     Dates: end: 20210119

REACTIONS (9)
  - Gastrooesophageal reflux disease [Unknown]
  - Dehydration [Unknown]
  - Disease progression [Unknown]
  - Blood iron decreased [Unknown]
  - Wound [Unknown]
  - Inflammation [Unknown]
  - Drug ineffective [Unknown]
  - Metastases to central nervous system [Unknown]
  - Diarrhoea [Unknown]
